FAERS Safety Report 5409692-1 (Version None)
Quarter: 2007Q3

REPORT INFORMATION
  Report Type: 
  Country: None (occurrence: None)
  Receive Date: 20070808
  Receipt Date: 20070808
  Transmission Date: 20080115
  Serious: No
  Sender: FDA-Public Use
  Company Number: None

PATIENT
  Sex: Female
  Weight: 50.6 kg

DRUGS (15)
  1. CYCLOPHOSPHAMIDE [Suspect]
  2. DOXORUBICIN HCL [Suspect]
  3. DARVON [Concomitant]
  4. DYAZIDE [Concomitant]
  5. GLUCOTROL [Concomitant]
  6. CALCIUM CHLORIDE [Concomitant]
  7. CENTRUM [Concomitant]
  8. COREG [Concomitant]
  9. MAGNESIUM OXIDE [Concomitant]
  10. PHENERGAN HCL [Concomitant]
  11. PROTONIX [Concomitant]
  12. REGULAR INSULIN [Concomitant]
  13. SYNTHROID [Concomitant]
  14. VALTREX [Concomitant]
  15. ZETIA [Concomitant]

REACTIONS (10)
  - BALANCE DISORDER [None]
  - DECREASED APPETITE [None]
  - ECHOCARDIOGRAM ABNORMAL [None]
  - FATIGUE [None]
  - GAIT DISTURBANCE [None]
  - HYPOAESTHESIA [None]
  - NEUROPATHY [None]
  - NEUTROPENIA [None]
  - PARAESTHESIA [None]
  - WEIGHT DECREASED [None]
